FAERS Safety Report 4625660-1 (Version None)
Quarter: 2005Q1

REPORT INFORMATION
  Report Type: 
  Country: None (occurrence: None)
  Receive Date: 20050330
  Receipt Date: 20050317
  Transmission Date: 20050727
  Serious: Yes (Other)
  Sender: FDA-Public Use
  Company Number: JP_041205477

PATIENT
  Age: 60 Year
  Sex: Female

DRUGS (5)
  1. ZYPREXA [Suspect]
     Indication: SCHIZOPHRENIA
     Dosage: 10 MG DAY
     Dates: start: 20040526
  2. NITRAZEPAM [Concomitant]
  3. MAGLAX (MAGENESIUM OXIDE) [Concomitant]
  4. SENNA LIQUID EXTRACT [Concomitant]
  5. ENSURE LIQUID [Concomitant]

REACTIONS (8)
  - AGGRESSION [None]
  - DELUSION [None]
  - HOSTILITY [None]
  - IRRITABILITY [None]
  - RESTLESSNESS [None]
  - SCREAMING [None]
  - SELF-INJURIOUS IDEATION [None]
  - SOLILOQUY [None]
